FAERS Safety Report 16513806 (Version 1)
Quarter: 2019Q3

REPORT INFORMATION
  Report Type: Spontaneous
  Country: CZ (occurrence: CZ)
  Receive Date: 20190702
  Receipt Date: 20190702
  Transmission Date: 20191004
  Serious: Yes (Other)
  Sender: FDA-Public Use
  Company Number: CZ-BAYER-2019-115097

PATIENT
  Sex: Male

DRUGS (1)
  1. STIVARGA [Suspect]
     Active Substance: REGORAFENIB
     Indication: COLORECTAL CANCER METASTATIC
     Dosage: UNK
     Route: 048
     Dates: start: 201802, end: 2018

REACTIONS (5)
  - Colorectal cancer metastatic [None]
  - Decreased appetite [None]
  - Leukopenia [None]
  - Neutropenia [None]
  - Dysphonia [None]

NARRATIVE: CASE EVENT DATE: 201805
